FAERS Safety Report 8998000 (Version 2)
Quarter: 2013Q1

REPORT INFORMATION
  Report Type: Report from Study
  Country: US (occurrence: US)
  Receive Date: 20130104
  Receipt Date: 20130122
  Transmission Date: 20140127
  Serious: Yes (Hospitalization)
  Sender: FDA-Public Use
  Company Number: US-ROCHE-1176348

PATIENT
  Age: 76 Year
  Sex: Female

DRUGS (1)
  1. RANIBIZUMAB [Suspect]
     Indication: RETINAL VEIN OCCLUSION
     Dosage: DATE OF LAST DOSE PRIOR TO SAE: 09/DEC/2011
     Route: 050
     Dates: start: 20111209

REACTIONS (4)
  - Headache [Not Recovered/Not Resolved]
  - Temporal arteritis [Not Recovered/Not Resolved]
  - Strabismus [Not Recovered/Not Resolved]
  - Ocular hyperaemia [Not Recovered/Not Resolved]
